FAERS Safety Report 5877956-3 (Version None)
Quarter: 2008Q3

REPORT INFORMATION
  Report Type: 
  Country: None (occurrence: None)
  Receive Date: 20080911
  Receipt Date: 20080905
  Transmission Date: 20090109
  Serious: Yes (Hospitalization)
  Sender: FDA-Public Use
  Company Number: B0536602A

PATIENT
  Age: 67 Year
  Sex: Female

DRUGS (2)
  1. LAMIVUDINE [Suspect]
     Route: 048
     Dates: start: 20040317
  2. HYDROCHLOROTHIAZIDE [Concomitant]

REACTIONS (7)
  - ASTHENIA [None]
  - DISEASE PROGRESSION [None]
  - ERUCTATION [None]
  - GASTRITIS [None]
  - HEPATITIS B [None]
  - MALAISE [None]
  - NAUSEA [None]
